FAERS Safety Report 10684613 (Version 2)
Quarter: 2014Q4

REPORT INFORMATION
  Report Type: Spontaneous
  Country: JP (occurrence: None)
  Receive Date: 20141229
  Receipt Date: 20141231
  Transmission Date: 20150529
  Serious: Yes (Other)
  Sender: FDA-Public Use
  Company Number: A201314852

PATIENT
  Age: 70 Year
  Sex: Male

DRUGS (4)
  1. LECTISOL (DAPSONE) [Concomitant]
  2. BAKTAR (SULFAMETHOXAZOLE + TRIMETHOPRIM) [Concomitant]
  3. ABACAVIR SULFATE + LAMIVUDINE [Suspect]
     Active Substance: ABACAVIR SULFATE\LAMIVUDINE
     Indication: HIV INFECTION
     Route: 048
     Dates: start: 20130620, end: 20130704
  4. ISENTRESS [Suspect]
     Active Substance: RALTEGRAVIR POTASSIUM
     Route: 048
     Dates: start: 20130620

REACTIONS (13)
  - Histiocytosis haematophagic [None]
  - Immune reconstitution inflammatory syndrome [None]
  - Platelet count decreased [None]
  - Renal disorder [None]
  - Shock [None]
  - Rash [None]
  - Inflammation [None]
  - Disseminated intravascular coagulation [None]
  - Hepatic function abnormal [None]
  - Oliguria [None]
  - Malaise [None]
  - Lymph node pain [None]
  - Pyrexia [None]

NARRATIVE: CASE EVENT DATE: 20130701
